FAERS Safety Report 7865028-8 (Version None)
Quarter: 2011Q4

REPORT INFORMATION
  Report Type: 
  Country: None (occurrence: None)
  Receive Date: 20111028
  Receipt Date: 20101004
  Transmission Date: 20120403
  Serious: No
  Sender: FDA-Public Use
  Company Number: US-GLAXOSMITHKLINE-A0884772A

PATIENT
  Age: 59 Year
  Sex: Female

DRUGS (10)
  1. ACTONEL [Concomitant]
  2. DIPHENOXYLATE [Concomitant]
  3. MECLIZINE [Concomitant]
  4. ADVAIR DISKUS 100/50 [Suspect]
     Indication: CHRONIC OBSTRUCTIVE PULMONARY DISEASE
     Dosage: 2PUFF THREE TIMES PER DAY
     Route: 055
     Dates: start: 20050101
  5. ENALAPRIL MALEATE [Concomitant]
  6. BEER [Concomitant]
  7. XANAX [Concomitant]
  8. ATROPINE [Concomitant]
  9. THEOPHYLLINE [Concomitant]
  10. NEXIUM [Concomitant]

REACTIONS (1)
  - BREATH ALCOHOL TEST POSITIVE [None]
